FAERS Safety Report 17849330 (Version 1)
Quarter: 2020Q2

REPORT INFORMATION
  Report Type: Spontaneous
  Country: US (occurrence: US)
  Receive Date: 20200601
  Receipt Date: 20200601
  Transmission Date: 20200714
  Serious: Yes (Death)
  Sender: FDA-Public Use
  Company Number: None

PATIENT
  Age: 64 Year
  Sex: Male
  Weight: 76.4 kg

DRUGS (3)
  1. VANCOMYCIN [Concomitant]
     Active Substance: VANCOMYCIN
     Dates: start: 20200516, end: 20200528
  2. REMDESIVIR. [Suspect]
     Active Substance: REMDESIVIR
     Indication: COVID-19
     Route: 041
     Dates: start: 20200516, end: 20200520
  3. ZOSYN [Concomitant]
     Active Substance: PIPERACILLIN SODIUM\TAZOBACTAM SODIUM
     Dates: start: 20200510, end: 20200529

REACTIONS (6)
  - Failure to thrive [None]
  - Pneumonia viral [None]
  - Dysphagia [None]
  - Respiratory failure [None]
  - End stage renal disease [None]
  - Cerebral infarction [None]

NARRATIVE: CASE EVENT DATE: 20200529
